FAERS Safety Report 4746124-0 (Version None)
Quarter: 2005Q3

REPORT INFORMATION
  Report Type: 
  Country: None (occurrence: None)
  Receive Date: 20050816
  Receipt Date: 20050629
  Transmission Date: 20060218
  Serious: Yes (Disabling, Other)
  Sender: FDA-Public Use
  Company Number: US-BRISTOL-MYERS SQUIBB COMPANY-13020805

PATIENT
  Age: 59 Year
  Sex: Male

DRUGS (14)
  1. ERBITUX [Suspect]
     Dosage: 3RD TREATMENT.  LOADING DOSE (400 MG/M2) GIVEN ON 19-APR-2005 OVER 3 HOURS AND 50 MIN.
     Route: 042
     Dates: start: 20050419, end: 20050419
  2. ALOXI [Concomitant]
     Indication: PREMEDICATION
     Dates: start: 20050419, end: 20050419
  3. BENADRYL [Concomitant]
     Indication: PREMEDICATION
     Dates: start: 20050419, end: 20050419
  4. DECADRON [Concomitant]
     Indication: PREMEDICATION
     Dates: start: 20050419, end: 20050419
  5. ALLOPURINOL [Concomitant]
  6. ASPIRIN [Concomitant]
  7. CAMPTOSAR [Concomitant]
     Dates: start: 20050419
  8. COMPAZINE [Concomitant]
  9. DIOVAN HCT [Concomitant]
  10. FISH OIL [Concomitant]
  11. FUROSEMIDE [Concomitant]
  12. GERITOL [Concomitant]
  13. LIPITOR [Concomitant]
  14. NORVASC [Concomitant]

REACTIONS (2)
  - DERMATITIS ACNEIFORM [None]
  - NECROSIS [None]
